FAERS Safety Report 9327268 (Version 1)
Quarter: 2013Q2

REPORT INFORMATION
  Report Type: Spontaneous
  Country: US (occurrence: US)
  Receive Date: 20130604
  Receipt Date: 20130604
  Transmission Date: 20140414
  Serious: No
  Sender: FDA-Public Use
  Company Number: US-AMGEN-USASP2013036779

PATIENT
  Age: 46 Year
  Sex: Male

DRUGS (3)
  1. ENBREL [Suspect]
     Indication: RHEUMATOID ARTHRITIS
     Dosage: UNK MG, QMO
     Dates: start: 20110216
  2. CYMBALTA [Suspect]
     Dosage: UNK
  3. HUMIRA [Suspect]
     Dosage: UNK

REACTIONS (7)
  - Arthralgia [Unknown]
  - Feeling abnormal [Unknown]
  - Dyspnoea [Recovered/Resolved]
  - Pruritus [Recovered/Resolved]
  - Urticaria [Recovered/Resolved]
  - Rash [Recovered/Resolved]
  - Chest pain [Recovered/Resolved]
